FAERS Safety Report 21260114 (Version 1)
Quarter: 2022Q3

REPORT INFORMATION
  Report Type: Spontaneous
  Country: US (occurrence: None)
  Receive Date: 20220824
  Receipt Date: 20220824
  Transmission Date: 20221027
  Serious: Yes (unspecified)
  Sender: FDA-Public Use
  Company Number: None

PATIENT
  Age: 61 Year
  Sex: Male
  Weight: 67.5 kg

DRUGS (8)
  1. CHOLESTYRAMINE POWDER FOR SUSPENSION [Suspect]
     Active Substance: CHOLESTYRAMINE
     Indication: Diarrhoea
     Dosage: OTHER QUANTITY : 4 4 GRAM SCOOP PROVI;?FREQUENCY : TWICE A DAY;?
     Route: 048
  2. LISINOPRIL [Concomitant]
     Active Substance: LISINOPRIL
  3. SPIRONOLACTONE [Concomitant]
     Active Substance: SPIRONOLACTONE
  4. CELECOXIB [Concomitant]
     Active Substance: CELECOXIB
  5. CARVEDILOL [Concomitant]
     Active Substance: CARVEDILOL
  6. DICLOFENAC [Concomitant]
     Active Substance: DICLOFENAC
  7. FLONASE [Concomitant]
     Active Substance: FLUTICASONE PROPIONATE
  8. ONE A DAY MEN^S 50+ MULTIVITAMIN [Concomitant]

REACTIONS (3)
  - Diarrhoea [None]
  - Therapy cessation [None]
  - Nonspecific reaction [None]

NARRATIVE: CASE EVENT DATE: 20220817
